FAERS Safety Report 15690761 (Version 1)
Quarter: 2018Q4

REPORT INFORMATION
  Report Type: Spontaneous
  Country: GB (occurrence: FR)
  Receive Date: 20181205
  Receipt Date: 20181205
  Transmission Date: 20190205
  Serious: Yes (Hospitalization)
  Sender: FDA-Public Use
  Company Number: FR-FRESENIUS KABI-FK201812101

PATIENT
  Age: 68 Year
  Sex: Female
  Weight: 66 kg

DRUGS (17)
  1. GLUCOSE (MANUFACTURER UNKNOWN) [Suspect]
     Active Substance: DEXTROSE
     Indication: CHEMOTHERAPY
     Route: 042
     Dates: start: 20181008, end: 20181008
  2. LEVOTHYROXINE SODIUM. [Concomitant]
     Active Substance: LEVOTHYROXINE SODIUM
  3. OXALIPLATIN. [Concomitant]
     Active Substance: OXALIPLATIN
  4. FLUOROURACIL. [Concomitant]
     Active Substance: FLUOROURACIL
  5. GLICLAZIDE [Concomitant]
     Active Substance: GLICLAZIDE
  6. ONDANSETRON [Concomitant]
     Active Substance: ONDANSETRON
  7. VENLAFAXINE [Concomitant]
     Active Substance: VENLAFAXINE HYDROCHLORIDE
  8. PANITUMUMAB [Concomitant]
     Active Substance: PANITUMUMAB
  9. PREGABALIN. [Concomitant]
     Active Substance: PREGABALIN
  10. METFORMIN [Concomitant]
     Active Substance: METFORMIN HYDROCHLORIDE
  11. IPRATROPIUM BROMIDE. [Concomitant]
     Active Substance: IPRATROPIUM BROMIDE
  12. PROPRANOLOL [Concomitant]
     Active Substance: PROPRANOLOL HYDROCHLORIDE
  13. METHYLPREDNISOLONE SODIUM SUCCINATE. [Suspect]
     Active Substance: METHYLPREDNISOLONE SODIUM SUCCINATE
     Indication: CHEMOTHERAPY
     Route: 042
     Dates: start: 20181008, end: 20181008
  14. CALCIUM FOLINATE [Concomitant]
     Active Substance: LEUCOVORIN CALCIUM
  15. SALBUTAMOL [Concomitant]
     Active Substance: ALBUTEROL
  16. FENTANYL. [Concomitant]
     Active Substance: FENTANYL
  17. DOXYCYCLINE. [Concomitant]
     Active Substance: DOXYCYCLINE

REACTIONS (1)
  - Coma acidotic [Recovering/Resolving]

NARRATIVE: CASE EVENT DATE: 20181009
